FAERS Safety Report 7036127-8 (Version None)
Quarter: 2010Q4

REPORT INFORMATION
  Report Type: 
  Country: None (occurrence: None)
  Receive Date: 20101008
  Receipt Date: 20100107
  Transmission Date: 20110411
  Serious: No
  Sender: FDA-Public Use
  Company Number: US-BRISTOL-MYERS SQUIBB COMPANY-14925812

PATIENT
  Age: 73 Year
  Sex: Female
  Weight: 63 kg

DRUGS (4)
  1. AVALIDE [Suspect]
     Dosage: 1 DF = 300/12.5MG
     Dates: start: 20100104
  2. AVAPRO [Suspect]
  3. METFORMIN [Concomitant]
  4. ASPIRIN [Concomitant]

REACTIONS (3)
  - DIZZINESS [None]
  - FLUID OVERLOAD [None]
  - PALPITATIONS [None]
